FAERS Safety Report 5292947-1 (Version None)
Quarter: 2007Q2

REPORT INFORMATION
  Report Type: 
  Country: None (occurrence: None)
  Receive Date: 20070411
  Receipt Date: 20070403
  Transmission Date: 20071010
  Serious: Yes (Hospitalization)
  Sender: FDA-Public Use
  Company Number: US-JNJFOC-20070401189

PATIENT
  Sex: Male
  Weight: 63.5 kg

DRUGS (3)
  1. DURAGESIC-100 [Suspect]
     Indication: BACK PAIN
     Dosage: 2 100 UG/HR PATCHES
     Route: 062
  2. DILAUDID [Concomitant]
     Indication: BREAKTHROUGH PAIN
     Dosage: EVERY 3 TO 6 HOURS
  3. WELLBUTRIN [Concomitant]
     Indication: DEPRESSION
     Route: 048

REACTIONS (2)
  - BACK PAIN [None]
  - ULCER [None]
